FAERS Safety Report 23710224 (Version 3)
Quarter: 2024Q2

REPORT INFORMATION
  Report Type: Spontaneous
  Country: US (occurrence: US)
  Receive Date: 20240405
  Receipt Date: 20240414
  Transmission Date: 20240715
  Serious: Yes (Other)
  Sender: FDA-Public Use
  Company Number: US-ABBVIE-5706360

PATIENT
  Sex: Female

DRUGS (2)
  1. RINVOQ [Suspect]
     Active Substance: UPADACITINIB
     Indication: Crohn^s disease
     Route: 048
  2. REMICADE [Suspect]
     Active Substance: INFLIXIMAB
     Indication: Product used for unknown indication
     Route: 065

REACTIONS (7)
  - Vasculitis [Unknown]
  - Rheumatoid arthritis [Unknown]
  - Arthropod bite [Unknown]
  - Wound necrosis [Unknown]
  - Lyme disease [Unknown]
  - Rocky mountain spotted fever [Unknown]
  - Surgery [Unknown]
